FAERS Safety Report 15413966 (Version 1)
Quarter: 2018Q3

REPORT INFORMATION
  Report Type: Spontaneous
  Country: ZA (occurrence: ZA)
  Receive Date: 20180921
  Receipt Date: 20180921
  Transmission Date: 20181010
  Serious: Yes (Hospitalization)
  Sender: FDA-Public Use
  Company Number: ZA-ASTRAZENECA-2018SF19220

PATIENT
  Age: 60 Year
  Sex: Male

DRUGS (7)
  1. OMEZ [Concomitant]
     Active Substance: OMEPRAZOLE
     Route: 048
  2. PURBAC [Concomitant]
     Active Substance: SULFAMETHOXAZOLE\TRIMETHOPRIM
     Dosage: DS 1 DAILY
     Route: 048
  3. CYNT [Concomitant]
     Route: 048
  4. FORXIGA [Suspect]
     Active Substance: DAPAGLIFLOZIN
     Route: 048
  5. NOVOMIX [Concomitant]
     Active Substance: INSULIN ASPART
     Dosage: 38U MANE, 24U NOCTE
     Route: 058
  6. EXFORGE [Concomitant]
     Active Substance: AMLODIPINE BESYLATE\VALSARTAN
     Dosage: 10/160MG DAILY
     Route: 048
  7. GLUCOPHAGE [Concomitant]
     Active Substance: METFORMIN HYDROCHLORIDE
     Route: 048

REACTIONS (8)
  - Weight decreased [Unknown]
  - Bacterial sepsis [Unknown]
  - Hiccups [Recovered/Resolved]
  - Infection [Unknown]
  - Gastritis [Unknown]
  - CD4 lymphocytes decreased [Unknown]
  - Vomiting [Unknown]
  - Viral titre increased [Unknown]
